FAERS Safety Report 8239010-5 (Version None)
Quarter: 2012Q1

REPORT INFORMATION
  Report Type: 
  Country: None (occurrence: None)
  Receive Date: 20120327
  Receipt Date: 20120322
  Transmission Date: 20120608
  Serious: No
  Sender: FDA-Public Use
  Company Number: US-PFIZER INC-2012043249

PATIENT
  Sex: Female

DRUGS (9)
  1. TRICOR [Concomitant]
     Dosage: UNK
  2. VITAMIN B-12 [Concomitant]
     Dosage: UNK
  3. BETACAROTENE [Concomitant]
     Dosage: UNK
  4. GLYBURIDE [Concomitant]
     Dosage: UNK
  5. ACETYLSALICYLIC ACID [Concomitant]
     Dosage: 81 MG, UNK
  6. LIPITOR [Suspect]
     Dosage: UNK
  7. NEXIUM [Concomitant]
     Dosage: UNK
  8. AMLODIPINE [Concomitant]
     Dosage: UNK
  9. VITAMIN E [Concomitant]
     Dosage: UNK

REACTIONS (1)
  - HYPOKINESIA [None]
